FAERS Safety Report 24531694 (Version 1)
Quarter: 2024Q4

REPORT INFORMATION
  Report Type: Spontaneous
  Country: JP (occurrence: JP)
  Receive Date: 20241022
  Receipt Date: 20241022
  Transmission Date: 20250114
  Serious: Yes (Hospitalization, Other)
  Sender: JUBILANT
  Company Number: JP-JUBILANT CADISTA PHARMACEUTICALS-2021JUB00282

PATIENT
  Age: 45 Year
  Sex: Male

DRUGS (2)
  1. LEVOFLOXACIN [Suspect]
     Active Substance: LEVOFLOXACIN
     Indication: Cough
     Dosage: UNK,UNK
     Route: 048
  2. LEVOFLOXACIN [Suspect]
     Active Substance: LEVOFLOXACIN
     Indication: Oropharyngeal pain

REACTIONS (3)
  - Vertebrobasilar artery dissection [Unknown]
  - Lateral medullary syndrome [Unknown]
  - Hypoaesthesia [Recovered/Resolved]
